FAERS Safety Report 17294711 (Version 1)
Quarter: 2020Q1

REPORT INFORMATION
  Report Type: Spontaneous
  Country: US (occurrence: US)
  Receive Date: 20200121
  Receipt Date: 20200121
  Transmission Date: 20200409
  Serious: No
  Sender: FDA-Public Use
  Company Number: US-PFIZER INC-2020023586

PATIENT
  Age: 42 Year
  Sex: Female
  Weight: 82.86 kg

DRUGS (2)
  1. CHANTIX [Suspect]
     Active Substance: VARENICLINE TARTRATE
     Indication: SMOKING CESSATION THERAPY
     Dosage: AS DIRECTED (STRENGTH: 0.5 MG X 11 DAYS)
  2. CHANTIX [Suspect]
     Active Substance: VARENICLINE TARTRATE
     Dosage: AS DIRECTED (1 MG X 42 DAYS)

REACTIONS (1)
  - Cough [Unknown]
